FAERS Safety Report 16402922 (Version 2)
Quarter: 2020Q1

REPORT INFORMATION
  Report Type: Spontaneous
  Country: NO (occurrence: NO)
  Receive Date: 20190607
  Receipt Date: 20200311
  Transmission Date: 20200409
  Serious: Yes (Disabling, Other)
  Sender: FDA-Public Use
  Company Number: NO-GLAXOSMITHKLINE-NO2019GSK097420

PATIENT
  Age: 58 Year
  Sex: Male

DRUGS (5)
  1. SINEMET [Suspect]
     Active Substance: CARBIDOPA\LEVODOPA
     Indication: PARKINSON^S DISEASE
     Dosage: 1 DF, TID(12.5/50MG)
     Dates: start: 20161129
  2. SINEMET [Suspect]
     Active Substance: CARBIDOPA\LEVODOPA
     Dosage: UNK UNK, TID(25/100MG)
  3. REQUIP [Suspect]
     Active Substance: ROPINIROLE HYDROCHLORIDE
     Dosage: 14 MG, QD
  4. AZILECT [Concomitant]
     Active Substance: RASAGILINE MESYLATE
     Indication: PARKINSON^S DISEASE
     Dosage: 1 MG, QD
     Dates: start: 2015
  5. REQUIP [Suspect]
     Active Substance: ROPINIROLE HYDROCHLORIDE
     Indication: PARKINSON^S DISEASE
     Dosage: 8 MG, UNK
     Dates: start: 20160121

REACTIONS (11)
  - Illusion [Not Recovered/Not Resolved]
  - Restlessness [Unknown]
  - Economic problem [Not Recovered/Not Resolved]
  - Middle insomnia [Unknown]
  - Overdose [Unknown]
  - Emotional distress [Unknown]
  - Abnormal behaviour [Unknown]
  - Suspiciousness [Not Recovered/Not Resolved]
  - Stress [Not Recovered/Not Resolved]
  - Impulse-control disorder [Not Recovered/Not Resolved]
  - Hallucination [Not Recovered/Not Resolved]

NARRATIVE: CASE EVENT DATE: 20170930
